FAERS Safety Report 17801801 (Version 1)
Quarter: 2020Q2

REPORT INFORMATION
  Report Type: Spontaneous
  Country: US (occurrence: US)
  Receive Date: 20200518
  Receipt Date: 20200518
  Transmission Date: 20200714
  Serious: Yes (Other)
  Sender: FDA-Public Use
  Company Number: None

PATIENT
  Age: 55 Year
  Sex: Female
  Weight: 147 kg

DRUGS (8)
  1. FAMOTIDINE. [Concomitant]
     Active Substance: FAMOTIDINE
     Dates: start: 20200509, end: 20200515
  2. REMDESIVIR INJECTION (FOR USE UNDER EUA) [Suspect]
     Active Substance: REMDESIVIR
     Indication: COVID-19
     Route: 041
     Dates: start: 20200510, end: 20200510
  3. VANCOMYCIN 1G IV Q12 [Concomitant]
     Dates: start: 20200512, end: 20200513
  4. ENOXAPARIN [Concomitant]
     Active Substance: ENOXAPARIN
     Dates: start: 20200507, end: 20200515
  5. PREGABALIN. [Concomitant]
     Active Substance: PREGABALIN
     Dates: start: 20200507, end: 20200511
  6. VANCOMYCIN 2G IV Q12 [Concomitant]
     Dates: start: 20200507, end: 20200511
  7. REMDESIVIR INJECTION (FOR USE UNDER EUA) [Suspect]
     Active Substance: REMDESIVIR
     Indication: COVID-19
     Route: 041
     Dates: start: 20200511, end: 20200512
  8. VANCOMYCIN 1G IV X 1 [Concomitant]
     Dates: start: 20200515, end: 20200515

REACTIONS (3)
  - Acute kidney injury [None]
  - Renal tubular necrosis [None]
  - Hypovolaemia [None]

NARRATIVE: CASE EVENT DATE: 20200513
